FAERS Safety Report 10670543 (Version 2)
Quarter: 2014Q4

REPORT INFORMATION
  Report Type: Report from Study
  Country: PH (occurrence: PH)
  Receive Date: 20141223
  Receipt Date: 20141223
  Transmission Date: 20150529
  Serious: Yes (Other)
  Sender: FDA-Public Use
  Company Number: PHHY2014PH139561

PATIENT
  Sex: Male

DRUGS (1)
  1. GLIVEC [Suspect]
     Active Substance: IMATINIB MESYLATE
     Indication: PRODUCT USED FOR UNKNOWN INDICATION
     Dosage: 400 MG, QD
     Route: 048
     Dates: start: 20130914, end: 20141007

REACTIONS (5)
  - General physical health deterioration [Unknown]
  - Rash [Unknown]
  - Neoplasm recurrence [Unknown]
  - Dermal cyst [Unknown]
  - Dry skin [Unknown]
